FAERS Safety Report 15771125 (Version 1)
Quarter: 2018Q4

REPORT INFORMATION
  Report Type: Spontaneous
  Country: US (occurrence: US)
  Receive Date: 20181228
  Receipt Date: 20181228
  Transmission Date: 20190205
  Serious: No
  Sender: FDA-Public Use
  Company Number: US-INDIVIOR LIMITED-INDV-114291-2018

PATIENT
  Age: 36 Year
  Sex: Male

DRUGS (4)
  1. CELEXA [Concomitant]
     Active Substance: CITALOPRAM HYDROBROMIDE
     Indication: DEPRESSION
     Dosage: UNKNOWN
     Route: 065
  2. SUBLOCADE [Suspect]
     Active Substance: BUPRENORPHINE
     Indication: DRUG USE DISORDER
     Dosage: 300 MG, QMO
     Route: 058
     Dates: start: 20180912
  3. BUNAVAIL [Suspect]
     Active Substance: BUPRENORPHINE HYDROCHLORIDE\NALOXONE HYDROCHLORIDE DIHYDRATE
     Indication: DRUG USE DISORDER
     Dosage: 4.2 MG, DAILY
     Route: 065
     Dates: end: 2018
  4. WELLBUTRIN [Concomitant]
     Active Substance: BUPROPION HYDROCHLORIDE
     Indication: DEPRESSION
     Dosage: UNKNOWN
     Route: 065

REACTIONS (5)
  - Euphoric mood [Unknown]
  - Urticaria [Unknown]
  - Sleep talking [Unknown]
  - Insomnia [Unknown]
  - Sedation [Unknown]

NARRATIVE: CASE EVENT DATE: 201809
